FAERS Safety Report 25023478 (Version 1)
Quarter: 2025Q1

REPORT INFORMATION
  Report Type: Spontaneous
  Country: CA (occurrence: CA)
  Receive Date: 20250228
  Receipt Date: 20250228
  Transmission Date: 20250409
  Serious: No
  Sender: TIME CAPS
  Company Number: CA-Time-Cap Labs, Inc.-2171971

PATIENT
  Sex: Male

DRUGS (1)
  1. BISACODYL LAXATIVE [Suspect]
     Active Substance: BISACODYL
     Indication: Product used for unknown indication

REACTIONS (1)
  - Drug ineffective [Unknown]
